FAERS Safety Report 8590718 (Version 2)
Quarter: 2012Q4

REPORT INFORMATION
  Report Type: 
  Country: US (occurrence: US)
  Receive Date: 20120601
  Receipt Date: 20120828
  Transmission Date: 20130627
  Serious: Yes (Other)
  Sender: FDA-Public Use
  Company Number: US-BAYER-2012-053385

PATIENT
  Sex: Male

DRUGS (2)
  1. GADAVIST [Suspect]
     Dosage: UNK
  2. PRILOSEC [Concomitant]
     Dosage: 20 mg, UNK

REACTIONS (5)
  - Loss of consciousness [None]
  - Cough [None]
  - Paraesthesia [None]
  - Flushing [None]
  - Nausea [None]
